FAERS Safety Report 5586632-6 (Version None)
Quarter: 2008Q1

REPORT INFORMATION
  Report Type: 
  Country: None (occurrence: None)
  Receive Date: 20080110
  Receipt Date: 20070926
  Transmission Date: 20080703
  Serious: No
  Sender: FDA-Public Use
  Company Number: US-BAYER-US-2007-036141

PATIENT
  Age: 31 Year
  Sex: Female
  Weight: 61 kg

DRUGS (2)
  1. YAZ [Suspect]
     Indication: CONTRACEPTION
     Route: 048
     Dates: start: 20070916
  2. CAVA CAVA [Concomitant]
     Indication: ANXIETY

REACTIONS (5)
  - BREAST TENDERNESS [None]
  - HEADACHE [None]
  - INSOMNIA [None]
  - ORAL HERPES [None]
  - VAGINAL INFECTION [None]
